FAERS Safety Report 18247448 (Version 2)
Quarter: 2020Q3

REPORT INFORMATION
  Report Type: Other
  Country: US (occurrence: US)
  Receive Date: 20200909
  Receipt Date: 20200918
  Transmission Date: 20201103
  Serious: Yes (Death, Other)
  Sender: FDA-Public Use
  Company Number: US-ACORDA-ACO_166019_2020

PATIENT
  Age: 80 Year
  Sex: Female

DRUGS (2)
  1. INBRIJA [Suspect]
     Active Substance: LEVODOPA
     Indication: ON AND OFF PHENOMENON
  2. INBRIJA [Suspect]
     Active Substance: LEVODOPA
     Indication: PARKINSON^S DISEASE
     Dosage: 84 MILLIGRAM, PRN (NOT TO EXCEED 5 DOSES A DAY)

REACTIONS (1)
  - Death [Fatal]

NARRATIVE: CASE EVENT DATE: 202003
